FAERS Safety Report 16056510 (Version 1)
Quarter: 2019Q2

REPORT INFORMATION
  Report Type: Spontaneous
  Country: US (occurrence: US)
  Receive Date: 20190309
  Receipt Date: 20190309
  Transmission Date: 20190711
  Serious: Yes (Life-Threatening, Other)
  Sender: FDA-Public Use
  Company Number: None

PATIENT
  Age: 42 Year
  Sex: Female
  Weight: 76.5 kg

DRUGS (1)
  1. AIMOVIG [Suspect]
     Active Substance: ERENUMAB-AOOE
     Indication: MIGRAINE
     Dosage: ?          QUANTITY:2 INJECTION(S);OTHER FREQUENCY:EVERY 30 DAYS;?
     Route: 030
     Dates: start: 20190304, end: 20190304

REACTIONS (13)
  - Muscle twitching [None]
  - Vomiting [None]
  - Myalgia [None]
  - Cognitive disorder [None]
  - Epistaxis [None]
  - Injection site pain [None]
  - Constipation [None]
  - Heart rate increased [None]
  - Anxiety [None]
  - Tremor [None]
  - Nausea [None]
  - Swelling [None]
  - Arthralgia [None]

NARRATIVE: CASE EVENT DATE: 20190304
